FAERS Safety Report 12281375 (Version 2)
Quarter: 2016Q2

REPORT INFORMATION
  Report Type: Spontaneous
  Country: US (occurrence: US)
  Receive Date: 20160419
  Receipt Date: 20160524
  Transmission Date: 20160815
  Serious: Yes (Hospitalization, Other)
  Sender: FDA-Public Use
  Company Number: US-PERNIX THERAPEUTICS-2016PT000077

PATIENT

DRUGS (6)
  1. LYRICA [Suspect]
     Active Substance: PREGABALIN
     Indication: CELLULITIS
  2. LYRICA [Suspect]
     Active Substance: PREGABALIN
     Indication: SURGERY
     Dosage: UNK
  3. HYDROCODONE [Suspect]
     Active Substance: HYDROCODONE
     Indication: PRODUCT USED FOR UNKNOWN INDICATION
  4. METHADONE [Suspect]
     Active Substance: METHADONE HYDROCHLORIDE
     Indication: PRODUCT USED FOR UNKNOWN INDICATION
     Dosage: 10 MG, UNK
     Route: 048
  5. LYRICA [Suspect]
     Active Substance: PREGABALIN
     Indication: NEURALGIA
     Dosage: 150 MG, 3 TIMES DAILY
     Route: 048
  6. LYRICA [Suspect]
     Active Substance: PREGABALIN
     Indication: PAIN IN EXTREMITY

REACTIONS (5)
  - Sepsis [Unknown]
  - Loss of consciousness [Recovered/Resolved]
  - Musculoskeletal disorder [Recovered/Resolved]
  - Somnolence [Recovered/Resolved]
  - Incoherent [Recovered/Resolved]

NARRATIVE: CASE EVENT DATE: 201502
